FAERS Safety Report 15455439 (Version 2)
Quarter: 2018Q4

REPORT INFORMATION
  Report Type: Spontaneous
  Country: US (occurrence: US)
  Receive Date: 20181002
  Receipt Date: 20181231
  Transmission Date: 20190204
  Serious: No
  Sender: FDA-Public Use
  Company Number: US-GLAXOSMITHKLINE-US2018GSK174064

PATIENT
  Sex: Male
  Weight: 77.98 kg

DRUGS (2)
  1. XOLAIR [Concomitant]
     Active Substance: OMALIZUMAB
  2. NUCALA [Suspect]
     Active Substance: MEPOLIZUMAB
     Indication: ASTHMA
     Dosage: 100 MG, CYC
     Route: 058
     Dates: start: 20161101, end: 20170628

REACTIONS (4)
  - Dermatitis [Unknown]
  - Dermatitis atopic [Unknown]
  - Blood immunoglobulin E increased [Unknown]
  - Rash pruritic [Unknown]
